FAERS Safety Report 5950631-2 (Version None)
Quarter: 2008Q4

REPORT INFORMATION
  Report Type: 
  Country: None (occurrence: None)
  Receive Date: 20081112
  Receipt Date: 20081107
  Transmission Date: 20090506
  Serious: Yes (Hospitalization)
  Sender: FDA-Public Use
  Company Number: DE-WYE-G02535508

PATIENT
  Age: 81 Year
  Sex: Female
  Weight: 62.2 kg

DRUGS (11)
  1. VENLAFAXINE HCL [Suspect]
     Indication: DEPRESSION
     Route: 048
     Dates: start: 20080516, end: 20080518
  2. VENLAFAXINE HCL [Interacting]
     Route: 048
     Dates: start: 20080514, end: 20080515
  3. VENLAFAXINE HCL [Interacting]
     Route: 048
     Dates: start: 20080519, end: 20080602
  4. VENLAFAXINE HCL [Interacting]
     Route: 048
     Dates: start: 20080603, end: 20080605
  5. ATACAND [Concomitant]
     Route: 048
  6. ACETYLSALICYLIC ACID SRT [Concomitant]
     Route: 048
  7. SEROQUEL [Interacting]
     Route: 048
     Dates: start: 20080424, end: 20080424
  8. SEROQUEL [Interacting]
     Route: 048
     Dates: start: 20080425, end: 20080427
  9. SEROQUEL [Interacting]
     Route: 048
     Dates: start: 20080428, end: 20080507
  10. SEROQUEL [Interacting]
     Route: 048
     Dates: start: 20080508, end: 20080523
  11. AMARYL [Concomitant]
     Route: 048

REACTIONS (2)
  - DRUG INTERACTION [None]
  - VENTRICULAR EXTRASYSTOLES [None]
